FAERS Safety Report 5012500-4 (Version None)
Quarter: 2006Q2

REPORT INFORMATION
  Report Type: 
  Country: None (occurrence: None)
  Receive Date: 20060526
  Receipt Date: 20060519
  Transmission Date: 20061013
  Serious: Yes (Congenital Anomaly)
  Sender: FDA-Public Use
  Company Number: US-ABBOTT-06P-163-0333902-00

PATIENT
  Sex: Male
  Weight: 3 kg

DRUGS (8)
  1. KALETRA [Suspect]
     Indication: DRUG EXPOSURE DURING PREGNANCY
  2. NORVIR [Suspect]
     Indication: DRUG EXPOSURE DURING PREGNANCY
  3. ATAZANAVIR [Suspect]
     Indication: DRUG EXPOSURE DURING PREGNANCY
  4. TENOFOVIR DISOPROXIL FUMARATE/EMTRICITABINE [Suspect]
     Indication: DRUG EXPOSURE DURING PREGNANCY
  5. TRIZIVIR [Suspect]
     Indication: DRUG EXPOSURE DURING PREGNANCY
  6. NELFINAVIR MESILATE [Suspect]
     Indication: DRUG EXPOSURE DURING PREGNANCY
  7. LAMIVUDINE AND ZIDOVUDINE [Suspect]
     Indication: DRUG EXPOSURE DURING PREGNANCY
  8. ZIDOVUDINE [Suspect]
     Indication: DRUG EXPOSURE DURING PREGNANCY

REACTIONS (3)
  - CONVULSION [None]
  - TRISOMY 15 [None]
  - TRISOMY 21 [None]
